FAERS Safety Report 8243417 (Version 2)
Quarter: 2013Q1

REPORT INFORMATION
  Report Type: Spontaneous
  Country: US (occurrence: US)
  Receive Date: 20111114
  Receipt Date: 20130207
  Transmission Date: 20140127
  Serious: Yes (Other)
  Sender: FDA-Public Use
  Company Number: US-PFIZER INC-2011274994

PATIENT
  Age: 65 Year
  Sex: Female
  Weight: 50.79 kg

DRUGS (5)
  1. PREMARIN [Suspect]
     Indication: HORMONE REPLACEMENT THERAPY
     Dosage: 0.3 MG, 1X/DAY
     Route: 048
  2. PREMARIN [Suspect]
     Indication: MENOPAUSAL SYMPTOMS
     Dosage: UNK
     Route: 048
     Dates: start: 201006
  3. PREMARIN [Suspect]
     Indication: HOT FLUSH
     Dosage: UNK
  4. MULTIVITAMINS [Concomitant]
     Dosage: UNK
  5. LEVOTHYROXINE [Concomitant]
     Indication: HYPOTHYROIDISM
     Dosage: UNK

REACTIONS (3)
  - Panic attack [Unknown]
  - Anxiety [Recovering/Resolving]
  - Depression [Not Recovered/Not Resolved]
